FAERS Safety Report 23887378 (Version 1)
Quarter: 2024Q2

REPORT INFORMATION
  Report Type: Spontaneous
  Country: PL (occurrence: PL)
  Receive Date: 20240523
  Receipt Date: 20240523
  Transmission Date: 20240716
  Serious: Yes (Other)
  Sender: FDA-Public Use
  Company Number: PL-URPL-2-590-2019

PATIENT
  Age: 63 Year
  Sex: Female

DRUGS (2)
  1. IBANDRONATE SODIUM [Suspect]
     Active Substance: IBANDRONATE SODIUM
     Indication: Osteoporosis
     Dosage: UNK (1 MONTH)
     Route: 048
     Dates: start: 20190423
  2. APO NAPRO [Concomitant]
     Indication: Spinal pain
     Dosage: UNK
     Route: 065

REACTIONS (3)
  - Chest pain [Recovering/Resolving]
  - Arthralgia [Recovering/Resolving]
  - Headache [Recovering/Resolving]

NARRATIVE: CASE EVENT DATE: 20190423
